FAERS Safety Report 12535850 (Version 1)
Quarter: 2016Q3

REPORT INFORMATION
  Report Type: Spontaneous
  Country: US (occurrence: None)
  Receive Date: 20160706
  Receipt Date: 20160706
  Transmission Date: 20161109
  Serious: No
  Sender: FDA-Public Use
  Company Number: None

PATIENT
  Age: 69 Year
  Sex: Male

DRUGS (1)
  1. PRALUENT [Suspect]
     Active Substance: ALIROCUMAB
     Indication: HYPERLIPIDAEMIA
     Dosage: PRALUENT PFS 75 MG SC Q2WK
     Route: 058
     Dates: start: 20160609

REACTIONS (3)
  - Oropharyngeal pain [None]
  - Nasopharyngitis [None]
  - Rhinorrhoea [None]

NARRATIVE: CASE EVENT DATE: 20160616
